FAERS Safety Report 9840576 (Version 1)
Quarter: 2014Q1

REPORT INFORMATION
  Report Type: Spontaneous
  Country: US (occurrence: US)
  Receive Date: 20140124
  Receipt Date: 20140124
  Transmission Date: 20141002
  Serious: No
  Sender: FDA-Public Use
  Company Number: US-PFIZER INC-2014020527

PATIENT
  Sex: 0

DRUGS (5)
  1. CELEBREX [Suspect]
     Dosage: 200 MG, 2X/DAY
  2. CYMBALTA [Suspect]
     Dosage: 60 MG, 1X/DAY
  3. LYRICA [Concomitant]
     Dosage: 75 MG, 1X/DAY
  4. GABAPENTINE [Concomitant]
     Dosage: 300 MG, 3X/DAY
  5. TOPIRAMATE [Concomitant]
     Dosage: 25 MG, 2X/DAY

REACTIONS (1)
  - Urine output decreased [Unknown]
